FAERS Safety Report 17808235 (Version 1)
Quarter: 2020Q2

REPORT INFORMATION
  Report Type: Report from Study
  Country: US (occurrence: US)
  Receive Date: 20200520
  Receipt Date: 20200520
  Transmission Date: 20200714
  Serious: No
  Sender: FDA-Public Use
  Company Number: NVSC2020US136164

PATIENT
  Age: 54 Year
  Sex: Male

DRUGS (1)
  1. ENTRESTO [Suspect]
     Active Substance: SACUBITRIL\VALSARTAN
     Indication: CARDIAC FAILURE
     Dosage: UNK UNK, BID
     Route: 065
     Dates: start: 201908

REACTIONS (5)
  - Product dose omission [Not Recovered/Not Resolved]
  - Oedema peripheral [Not Recovered/Not Resolved]
  - Cough [Unknown]
  - Dyspnoea [Not Recovered/Not Resolved]
  - General physical health deterioration [Unknown]

NARRATIVE: CASE EVENT DATE: 202003
